FAERS Safety Report 7494932-8 (Version None)
Quarter: 2011Q2

REPORT INFORMATION
  Report Type: 
  Country: None (occurrence: None)
  Receive Date: 20110520
  Receipt Date: 20110427
  Transmission Date: 20111010
  Serious: No
  Sender: FDA-Public Use
  Company Number: JP-ASTRAZENECA-2011SE29697

PATIENT
  Age: 77 Year
  Sex: Male

DRUGS (1)
  1. SEROQUEL [Suspect]
     Route: 048
     Dates: start: 20110412, end: 20110423

REACTIONS (4)
  - DRUG ERUPTION [None]
  - LIVER FUNCTION TEST ABNORMAL [None]
  - NEUTROPHIL COUNT DECREASED [None]
  - EOSINOPHIL COUNT INCREASED [None]
